FAERS Safety Report 5845858-4 (Version None)
Quarter: 2008Q3

REPORT INFORMATION
  Report Type: 
  Country: None (occurrence: None)
  Receive Date: 20080814
  Receipt Date: 20080812
  Transmission Date: 20090109
  Serious: Yes (Death, Other)
  Sender: FDA-Public Use
  Company Number: US-BOEHRINGER INGELHEIM GMBH, GERMANY-2008-BP-12737BP

PATIENT
  Age: 68 Year
  Sex: Female

DRUGS (1)
  1. AGGRENOX [Suspect]
     Dates: start: 20080101, end: 20080101

REACTIONS (2)
  - HAEMORRHAGE [None]
  - ISCHAEMIA [None]
